FAERS Safety Report 6730762-X (Version None)
Quarter: 2010Q2

REPORT INFORMATION
  Report Type: 
  Country: None (occurrence: None)
  Receive Date: 20100518
  Receipt Date: 20100512
  Transmission Date: 20101027
  Serious: Yes (Hospitalization)
  Sender: FDA-Public Use
  Company Number: JP-BAYER-200914541BYL

PATIENT
  Age: 57 Year
  Sex: Male
  Weight: 48 kg

DRUGS (1)
  1. NEXAVAR [Suspect]
     Indication: HEPATIC NEOPLASM MALIGNANT
     Dosage: UNIT DOSE: 200 MG
     Route: 048
     Dates: start: 20090805, end: 20090809

REACTIONS (3)
  - HEPATIC FUNCTION ABNORMAL [None]
  - INFLAMMATION [None]
  - PYREXIA [None]
